FAERS Safety Report 16310136 (Version 6)
Quarter: 2023Q2

REPORT INFORMATION
  Report Type: Other
  Country: DE (occurrence: None)
  Receive Date: 20190514
  Receipt Date: 20230529
  Transmission Date: 20230721
  Serious: Yes (Hospitalization)
  Sender: FDA-Public Use
  Company Number: DE-ROCHE-2242981

PATIENT
  Age: 57 Year
  Sex: Female

DRUGS (16)
  1. OCREVUS [Suspect]
     Active Substance: OCRELIZUMAB
     Indication: Primary progressive multiple sclerosis
     Dosage: LAST INFUSION RECEIVED WAS ADMINISTERED ON 22/JUL/2021, 600MG ON 226 DAYS
     Route: 042
     Dates: start: 20181129
  2. OCREVUS [Suspect]
     Active Substance: OCRELIZUMAB
     Route: 042
  3. OCREVUS [Suspect]
     Active Substance: OCRELIZUMAB
     Route: 042
     Dates: start: 20200630
  4. OCREVUS [Suspect]
     Active Substance: OCRELIZUMAB
     Route: 042
     Dates: start: 20201208
  5. BACLOFEN [Suspect]
     Active Substance: BACLOFEN
     Indication: Product used for unknown indication
     Dosage: 2-2-2
     Route: 065
     Dates: end: 20190620
  6. BACLOFEN [Suspect]
     Active Substance: BACLOFEN
     Route: 065
  7. BACLOFEN [Suspect]
     Active Substance: BACLOFEN
     Dosage: 2-2-2
     Route: 065
  8. BACLOFEN [Suspect]
     Active Substance: BACLOFEN
     Route: 065
  9. BENSERAZIDE HYDROCHLORIDE\LEVODOPA [Suspect]
     Active Substance: BENSERAZIDE HYDROCHLORIDE\LEVODOPA
     Indication: Product used for unknown indication
     Dosage: 100/25 MG (0-0-1)
     Route: 048
  10. DALFAMPRIDINE [Concomitant]
     Active Substance: DALFAMPRIDINE
  11. PREGABALIN [Concomitant]
     Active Substance: PREGABALIN
     Dosage: 2-0-2
  12. PREGABALIN [Concomitant]
     Active Substance: PREGABALIN
  13. CANDESARTAN [Concomitant]
     Active Substance: CANDESARTAN
  14. CANDESARTAN [Concomitant]
     Active Substance: CANDESARTAN
  15. TIZANIDINE [Concomitant]
     Active Substance: TIZANIDINE
  16. NABIXIMOLS [Concomitant]
     Active Substance: NABIXIMOLS

REACTIONS (22)
  - Dry skin [Not Recovered/Not Resolved]
  - Asthenia [Recovered/Resolved]
  - Infection [Unknown]
  - Nausea [Recovering/Resolving]
  - Headache [Recovered/Resolved]
  - Muscle spasms [Recovered/Resolved]
  - Dry skin [Not Recovered/Not Resolved]
  - Sensory disturbance [Not Recovered/Not Resolved]
  - Pain in extremity [Not Recovered/Not Resolved]
  - Fatigue [Recovered/Resolved]
  - Cystitis noninfective [Recovered/Resolved]
  - Mass [Not Recovered/Not Resolved]
  - Drug interaction [Unknown]
  - Muscle spasticity [Not Recovered/Not Resolved]
  - Skin atrophy [Not Recovered/Not Resolved]
  - Skin exfoliation [Not Recovered/Not Resolved]
  - Skin laceration [Not Recovered/Not Resolved]
  - Haematoma [Not Recovered/Not Resolved]
  - Alopecia [Not Recovered/Not Resolved]
  - Cystitis noninfective [Recovered/Resolved]
  - Urinary tract infection [Recovered/Resolved]
  - Endocarditis [Recovering/Resolving]

NARRATIVE: CASE EVENT DATE: 20190429
